FAERS Safety Report 18699032 (Version 1)
Quarter: 2021Q1

REPORT INFORMATION
  Report Type: Spontaneous
  Country: US (occurrence: US)
  Receive Date: 20210105
  Receipt Date: 20210105
  Transmission Date: 20210419
  Serious: No
  Sender: FDA-Public Use
  Company Number: US-AMGEN-USASP2020213141

PATIENT
  Age: 76 Year
  Sex: Female

DRUGS (2)
  1. CINACALCET HCL [Suspect]
     Active Substance: CINACALCET HYDROCHLORIDE
     Indication: CALCIPHYLAXIS
     Dosage: 30 MILLIGRAM, Q3WK
     Route: 048
  2. STS [Concomitant]
     Dosage: 25 MILLIGRAM, Q2WK
     Route: 042

REACTIONS (2)
  - Off label use [Unknown]
  - Therapeutic response unexpected [Unknown]
